FAERS Safety Report 11403654 (Version 1)
Quarter: 2015Q3

REPORT INFORMATION
  Report Type: Spontaneous
  Country: US (occurrence: US)
  Receive Date: 20150821
  Receipt Date: 20150821
  Transmission Date: 20151125
  Serious: Yes (Other)
  Sender: FDA-Public Use
  Company Number: US-SA-2015SA122752

PATIENT
  Sex: Male

DRUGS (3)
  1. VICODIN [Concomitant]
     Active Substance: ACETAMINOPHEN\HYDROCODONE BITARTRATE
  2. FABRAZYME [Suspect]
     Active Substance: AGALSIDASE BETA
     Route: 041
  3. FABRAZYME [Suspect]
     Active Substance: AGALSIDASE BETA
     Route: 041

REACTIONS (6)
  - Renal disorder [Unknown]
  - Therapeutic response decreased [Unknown]
  - Antibody test positive [Unknown]
  - Paraesthesia [Unknown]
  - Globotriaosylceramide increased [Unknown]
  - Gastrointestinal disorder [Unknown]
